FAERS Safety Report 19138456 (Version 1)
Quarter: 2021Q2

REPORT INFORMATION
  Report Type: Spontaneous
  Country: US (occurrence: US)
  Receive Date: 20210415
  Receipt Date: 20210415
  Transmission Date: 20210717
  Serious: No
  Sender: FDA-Public Use
  Company Number: US-ACCORD-186505

PATIENT
  Sex: Male
  Weight: 101.15 kg

DRUGS (2)
  1. OXYBUTYNIN ACCORD [Suspect]
     Active Substance: OXYBUTYNIN
     Indication: SURGERY
     Dosage: 15 MG BY MOUTH ONCE A DAY
     Route: 048
  2. TOVIAZ [Suspect]
     Active Substance: FESOTERODINE FUMARATE
     Indication: PRODUCT USED FOR UNKNOWN INDICATION
     Dosage: STRENGTH 8 MG ONCE A DAY

REACTIONS (4)
  - Dry eye [Unknown]
  - Micturition urgency [Unknown]
  - Dry mouth [Unknown]
  - Urinary incontinence [Unknown]
